FAERS Safety Report 8599059-X (Version None)
Quarter: 2012Q3

REPORT INFORMATION
  Report Type: 
  Country: None (occurrence: None)
  Receive Date: 20120816
  Receipt Date: 20120807
  Transmission Date: 20120928
  Serious: Yes (Other)
  Sender: FDA-Public Use
  Company Number: US-ASTRAZENECA-2012SE50423

PATIENT
  Age: 76 Year
  Sex: Female
  Weight: 75.3 kg

DRUGS (4)
  1. CALCITONIN SALMON [Concomitant]
     Indication: OSTEOPENIA
     Dates: start: 20090601, end: 20120601
  2. ASPIRIN [Concomitant]
     Indication: CARDIAC DISORDER
     Route: 048
  3. XOPENEX [Concomitant]
     Indication: ASTHMA
     Dosage: TWO PUFFS EVERY NIGHT
     Dates: start: 20090206
  4. SYMBICORT [Suspect]
     Indication: ASTHMA
     Dosage: 160/4.5 MCG TWO PUFFS TWO TIMES A DAY
     Route: 055
     Dates: start: 20090210, end: 20120601

REACTIONS (4)
  - PALPITATIONS [None]
  - CHEST DISCOMFORT [None]
  - SUPRAVENTRICULAR TACHYCARDIA [None]
  - CHEST PAIN [None]
